FAERS Safety Report 7672404-5 (Version None)
Quarter: 2011Q3

REPORT INFORMATION
  Report Type: 
  Country: None (occurrence: None)
  Receive Date: 20110809
  Receipt Date: 20110803
  Transmission Date: 20111222
  Serious: Yes (Hospitalization, Disabling, Other)
  Sender: FDA-Public Use
  Company Number: US-MERCK-1007USA04077

PATIENT
  Age: 63 Year
  Sex: Female

DRUGS (8)
  1. FOSAMAX [Suspect]
     Indication: OSTEOPOROSIS
     Dosage: 1 X WEEK
     Route: 048
     Dates: start: 19980101, end: 20060901
  2. VITAMIN D (UNSPECIFIED) [Concomitant]
     Indication: OSTEOPOROSIS
     Route: 065
     Dates: start: 19980101
  3. FOSAMAX [Suspect]
     Indication: OSTEOPOROSIS PROPHYLAXIS
     Dosage: 1 X WEEK
     Route: 048
     Dates: start: 19980101, end: 20060901
  4. CRESTOR [Concomitant]
     Route: 065
  5. CALCIUM (UNSPECIFIED) AND VITAMIN D (UNSPECIFIED) [Concomitant]
     Route: 065
  6. FOSAMAX PLUS D [Suspect]
     Indication: OSTEOPOROSIS
     Route: 048
     Dates: start: 20060901, end: 20080301
  7. BONIVA [Concomitant]
     Indication: OSTEOPOROSIS
     Dosage: 150 1 X MTH
     Route: 048
     Dates: start: 20080101, end: 20100101
  8. PRIMIDONE [Concomitant]
     Route: 065

REACTIONS (9)
  - LIMB CRUSHING INJURY [None]
  - FRACTURE NONUNION [None]
  - FEMUR FRACTURE [None]
  - IMPAIRED HEALING [None]
  - FALL [None]
  - UPPER LIMB FRACTURE [None]
  - BLOOD CHOLESTEROL INCREASED [None]
  - PELVIC FRACTURE [None]
  - TOOTH DISORDER [None]
